FAERS Safety Report 21434566 (Version 1)
Quarter: 2022Q4

REPORT INFORMATION
  Report Type: Spontaneous
  Country: US (occurrence: US)
  Receive Date: 20221010
  Receipt Date: 20221010
  Transmission Date: 20230112
  Serious: Yes (Other)
  Sender: FDA-Public Use
  Company Number: US-SUN PHARMACEUTICAL INDUSTRIES LTD-2020R1-245741

PATIENT
  Age: 52 Year
  Sex: Male

DRUGS (3)
  1. OXYCODONE [Suspect]
     Active Substance: OXYCODONE
     Indication: Pain
     Dosage: UNK
     Route: 065
  2. ACETAMINOPHEN [Concomitant]
     Active Substance: ACETAMINOPHEN
     Indication: Pain
     Route: 065
  3. FENTANYL [Concomitant]
     Active Substance: FENTANYL
     Indication: Pain
     Route: 065

REACTIONS (3)
  - Drug use disorder [Unknown]
  - Incorrect product administration duration [Unknown]
  - Drug dependence [Unknown]
